FAERS Safety Report 4995035-4 (Version None)
Quarter: 2006Q2

REPORT INFORMATION
  Report Type: 
  Country: None (occurrence: None)
  Receive Date: 20060508
  Receipt Date: 20060426
  Transmission Date: 20061013
  Serious: Yes (Hospitalization, Other)
  Sender: FDA-Public Use
  Company Number: GB-GLAXOSMITHKLINE-B0421373A

PATIENT
  Age: 95 Year
  Sex: Female

DRUGS (10)
  1. RANITIDINE [Suspect]
     Indication: GASTROINTESTINAL DISORDER
     Dosage: 150MG TWICE PER DAY
     Route: 048
     Dates: start: 19980124, end: 20060407
  2. SPIRONOLACTONE [Suspect]
     Indication: POLYURIA
     Dosage: 25MG PER DAY
     Route: 048
     Dates: start: 19970407, end: 20060407
  3. PAROXETINE [Suspect]
     Indication: DEPRESSION
     Dosage: 30MG PER DAY
     Route: 048
     Dates: start: 19970419
  4. TEMAZEPAM [Concomitant]
     Indication: INSOMNIA
     Dosage: 10MG AT NIGHT
     Route: 048
  5. ACETAMINOPHEN [Concomitant]
     Indication: PAIN
     Dosage: 1G AS REQUIRED
     Route: 048
  6. LACTULOSE [Concomitant]
     Indication: CONSTIPATION
     Dosage: 10ML AS REQUIRED
     Route: 048
  7. METOCLOPRAMIDE [Concomitant]
     Indication: NAUSEA
     Dosage: 10MG THREE TIMES PER DAY
     Route: 048
     Dates: end: 20060407
  8. PILOCARPINE [Concomitant]
     Indication: GLAUCOMA
     Route: 047
  9. XALACOM [Concomitant]
     Indication: GLAUCOMA
     Route: 047
  10. AZOPT [Concomitant]
     Indication: GLAUCOMA
     Route: 047

REACTIONS (2)
  - CONTUSION [None]
  - PLATELET COUNT DECREASED [None]
